FAERS Safety Report 7058504-1 (Version None)
Quarter: 2010Q4

REPORT INFORMATION
  Report Type: 
  Country: None (occurrence: None)
  Receive Date: 20101022
  Receipt Date: 20100913
  Transmission Date: 20110411
  Serious: Yes (Death, Life-Threatening, Other)
  Sender: FDA-Public Use
  Company Number: US-BAXTER-2009BH017440

PATIENT
  Age: 64 Year
  Sex: Male
  Weight: 67 kg

DRUGS (25)
  1. HEPARIN SODIUM INJECTION [Suspect]
     Indication: AORTOGRAM
     Route: 042
     Dates: start: 20071212, end: 20071212
  2. HEPARIN SODIUM INJECTION [Suspect]
     Indication: ARTERIOGRAM
     Route: 042
     Dates: start: 20071212, end: 20071212
  3. HEPARIN SODIUM INJECTION [Suspect]
     Indication: AORTIC BYPASS
     Route: 042
     Dates: start: 20071212, end: 20071212
  4. HEPARIN SODIUM INJECTION [Suspect]
     Route: 042
     Dates: start: 20071116, end: 20071116
  5. HEPARIN SODIUM INJECTION [Suspect]
     Route: 042
     Dates: start: 20071116, end: 20071116
  6. HEPARIN SODIUM INJECTION [Suspect]
     Route: 042
     Dates: start: 20071116, end: 20071116
  7. HEPARIN SODIUM 5,000 UNITS IN DEXTROSE 5% [Suspect]
     Indication: AORTIC BYPASS
     Route: 042
     Dates: start: 20071212, end: 20071214
  8. METOPROLOL [Concomitant]
     Indication: PRODUCT USED FOR UNKNOWN INDICATION
     Route: 048
  9. PENTOXIFYLLINE [Concomitant]
     Indication: PRODUCT USED FOR UNKNOWN INDICATION
     Route: 048
  10. HYDROCHLOROTHIAZIDE [Concomitant]
     Indication: PRODUCT USED FOR UNKNOWN INDICATION
     Route: 048
  11. ANCEF [Concomitant]
     Indication: PRODUCT USED FOR UNKNOWN INDICATION
     Route: 042
  12. REGLAN [Concomitant]
     Indication: PRODUCT USED FOR UNKNOWN INDICATION
     Route: 042
  13. LOVAZA [Concomitant]
     Indication: PRODUCT USED FOR UNKNOWN INDICATION
     Route: 048
  14. ASPIRIN [Concomitant]
     Indication: PRODUCT USED FOR UNKNOWN INDICATION
     Route: 065
  15. DILTIAZEM [Concomitant]
     Indication: PRODUCT USED FOR UNKNOWN INDICATION
     Route: 065
  16. ATENOLOL [Concomitant]
     Indication: PRODUCT USED FOR UNKNOWN INDICATION
     Route: 065
  17. VERSED [Concomitant]
     Indication: PRODUCT USED FOR UNKNOWN INDICATION
     Route: 042
  18. PEPCID [Concomitant]
     Indication: PRODUCT USED FOR UNKNOWN INDICATION
     Route: 065
  19. NITROGLYCERIN ^A.L.^ [Concomitant]
     Indication: PRODUCT USED FOR UNKNOWN INDICATION
     Route: 065
  20. CLOPIDOGREL [Concomitant]
     Indication: PRODUCT USED FOR UNKNOWN INDICATION
     Route: 065
  21. ACETAMINOPHEN [Concomitant]
     Indication: PRODUCT USED FOR UNKNOWN INDICATION
     Route: 065
  22. SODIUM CHLORIDE [Concomitant]
     Indication: PRODUCT USED FOR UNKNOWN INDICATION
     Route: 065
  23. CEFAZOLIN [Concomitant]
     Indication: PRODUCT USED FOR UNKNOWN INDICATION
     Route: 065
  24. BUPIVACAINE/FENTANYL [Concomitant]
     Indication: PRODUCT USED FOR UNKNOWN INDICATION
     Route: 065
  25. CALCIUM GLUCONATE [Concomitant]
     Indication: PRODUCT USED FOR UNKNOWN INDICATION
     Route: 065

REACTIONS (12)
  - ARRHYTHMIA [None]
  - DIARRHOEA [None]
  - HEART RATE INCREASED [None]
  - HYPOTENSION [None]
  - PAIN [None]
  - PERIPHERAL VASCULAR DISORDER [None]
  - PRURITUS [None]
  - PULSE ABSENT [None]
  - SWELLING [None]
  - URTICARIA [None]
  - VENTRICULAR TACHYCARDIA [None]
  - VOMITING [None]
